FAERS Safety Report 6430969-5 (Version None)
Quarter: 2009Q4

REPORT INFORMATION
  Report Type: 
  Country: None (occurrence: None)
  Receive Date: 20091106
  Receipt Date: 20091027
  Transmission Date: 20100525
  Serious: Yes (Other)
  Sender: FDA-Public Use
  Company Number: US-PFIZER INC-2009290179

PATIENT
  Age: 64 Year
  Sex: Female

DRUGS (2)
  1. VFEND [Suspect]
     Dosage: 330 MG, 2X/DAY
     Route: 042
     Dates: start: 20091023, end: 20091026
  2. VFEND [Suspect]
     Dosage: 200 MG, 2X/DAY
     Dates: start: 20091027

REACTIONS (4)
  - ARTHROPATHY [None]
  - CREATININE RENAL CLEARANCE DECREASED [None]
  - PLEURAL EFFUSION [None]
  - RENAL IMPAIRMENT [None]
